FAERS Safety Report 25307590 (Version 2)
Quarter: 2025Q2

REPORT INFORMATION
  Report Type: Spontaneous
  Country: HR (occurrence: HR)
  Receive Date: 20250513
  Receipt Date: 20250519
  Transmission Date: 20250716
  Serious: No
  Sender: PFIZER
  Company Number: HR-MLMSERVICE-20250502-PI497488-00082-1

PATIENT
  Age: 5 Year
  Sex: Male

DRUGS (11)
  1. CARBOPLATIN [Suspect]
     Active Substance: CARBOPLATIN
     Indication: Retinoblastoma
     Dates: start: 202203
  2. TOPOTECAN [Suspect]
     Active Substance: TOPOTECAN HYDROCHLORIDE
     Indication: Retinoblastoma
     Route: 013
     Dates: start: 202209
  3. TOPOTECAN [Suspect]
     Active Substance: TOPOTECAN HYDROCHLORIDE
     Route: 013
     Dates: start: 202210
  4. ETOPOSIDE [Suspect]
     Active Substance: ETOPOSIDE
     Indication: Retinoblastoma
     Dates: start: 202203
  5. MELPHALAN [Suspect]
     Active Substance: MELPHALAN
     Indication: Retinoblastoma
     Dates: start: 202203
  6. MELPHALAN [Suspect]
     Active Substance: MELPHALAN
     Route: 013
     Dates: start: 202204
  7. MELPHALAN [Suspect]
     Active Substance: MELPHALAN
     Dates: start: 202204
  8. MELPHALAN [Suspect]
     Active Substance: MELPHALAN
     Dates: start: 202205
  9. MELPHALAN [Suspect]
     Active Substance: MELPHALAN
     Route: 013
     Dates: start: 202205
  10. MELPHALAN [Suspect]
     Active Substance: MELPHALAN
     Route: 013
     Dates: start: 202209
  11. MELPHALAN [Suspect]
     Active Substance: MELPHALAN
     Route: 013
     Dates: start: 202210

REACTIONS (1)
  - Off label use [Unknown]

NARRATIVE: CASE EVENT DATE: 20220301
